FAERS Safety Report 23396790 (Version 1)
Quarter: 2024Q1

REPORT INFORMATION
  Report Type: Spontaneous
  Country: US (occurrence: None)
  Receive Date: 20240111
  Receipt Date: 20240111
  Transmission Date: 20240410
  Serious: Yes (Hospitalization)
  Sender: FDA-Public Use
  Company Number: None

PATIENT
  Age: 77 Year
  Sex: Male
  Weight: 52.07 kg

DRUGS (2)
  1. BREYANZI [Suspect]
     Active Substance: LISOCABTAGENE MARALEUCEL
     Indication: Diffuse large B-cell lymphoma
     Dosage: ONCE INTRAVENOUS?
     Route: 042
     Dates: start: 20231121, end: 20231208
  2. BREYANZI [Concomitant]
     Active Substance: LISOCABTAGENE MARALEUCEL
     Dates: start: 20231121, end: 20231121

REACTIONS (5)
  - Hypotension [None]
  - Hypoxia [None]
  - Cytokine release syndrome [None]
  - Mental status changes [None]
  - Neurotoxicity [None]

NARRATIVE: CASE EVENT DATE: 20231127
